FAERS Safety Report 13897604 (Version 1)
Quarter: 2017Q3

REPORT INFORMATION
  Report Type: Spontaneous
  Country: DK (occurrence: DK)
  Receive Date: 20170823
  Receipt Date: 20170823
  Transmission Date: 20171127
  Serious: Yes (Hospitalization)
  Sender: FDA-Public Use
  Company Number: DK-JNJFOC-20170819034

PATIENT
  Age: 42 Year
  Sex: Male

DRUGS (4)
  1. METOPROLOL SUCCINATE. [Concomitant]
     Active Substance: METOPROLOL SUCCINATE
     Indication: HYPERTENSION
     Route: 065
  2. AMLODIPIN MESILATE [Concomitant]
     Indication: HYPERTENSION
     Route: 065
  3. RIVAROXABAN [Suspect]
     Active Substance: RIVAROXABAN
     Indication: THROMBOSIS PROPHYLAXIS
     Route: 048
     Dates: start: 201705, end: 20170803
  4. RAMIPRIL. [Concomitant]
     Active Substance: RAMIPRIL
     Indication: HYPERTENSION
     Route: 065

REACTIONS (6)
  - Drug ineffective [Not Recovered/Not Resolved]
  - Back pain [Unknown]
  - Portal vein thrombosis [Not Recovered/Not Resolved]
  - Splenic infarction [Not Recovered/Not Resolved]
  - Abdominal pain [Unknown]
  - Vena cava thrombosis [Not Recovered/Not Resolved]

NARRATIVE: CASE EVENT DATE: 201707
